FAERS Safety Report 8589826-0 (Version None)
Quarter: 2012Q3

REPORT INFORMATION
  Report Type: 
  Country: None (occurrence: None)
  Receive Date: 20120813
  Receipt Date: 20120807
  Transmission Date: 20120928
  Serious: Yes (Life-Threatening, Hospitalization)
  Sender: FDA-Public Use
  Company Number: US-ROCHE-1098608

PATIENT
  Sex: Female
  Weight: 71.278 kg

DRUGS (1)
  1. HERCEPTIN [Suspect]
     Indication: BREAST CANCER
     Dosage: FORM STRENGTH: 21 MG/ML
     Route: 042
     Dates: start: 20120727

REACTIONS (3)
  - GINGIVAL BLEEDING [None]
  - PETECHIAE [None]
  - CONTUSION [None]
